FAERS Safety Report 19799156 (Version 1)
Quarter: 2021Q3

REPORT INFORMATION
  Report Type: Spontaneous
  Country: PH (occurrence: PH)
  Receive Date: 20210907
  Receipt Date: 20210907
  Transmission Date: 20211014
  Serious: Yes (Death, Other)
  Sender: FDA-Public Use
  Company Number: PH-BAYER-2021-200791

PATIENT
  Age: 67 Year
  Sex: Male

DRUGS (1)
  1. NEXAVAR [Suspect]
     Active Substance: SORAFENIB
     Indication: HEPATOCELLULAR CARCINOMA
     Dosage: 250 MG DAILY
     Route: 048
     Dates: start: 20120609, end: 20210825

REACTIONS (4)
  - Multiple organ dysfunction syndrome [Fatal]
  - Off label use [None]
  - Blood pressure decreased [None]
  - Asthenia [None]

NARRATIVE: CASE EVENT DATE: 20190609
